FAERS Safety Report 5226147-8 (Version None)
Quarter: 2007Q1

REPORT INFORMATION
  Report Type: 
  Country: None (occurrence: None)
  Receive Date: 20070201
  Receipt Date: 20070118
  Transmission Date: 20070707
  Serious: Yes (Life-Threatening, Other)
  Sender: FDA-Public Use
  Company Number: IN-KINGPHARMUSA00001-K200700061

PATIENT

DRUGS (1)
  1. PITOCIN [Suspect]
     Indication: LABOUR INDUCTION
     Dosage: 2 MLU/MIN INCREASED BY 2MIU/MIN Q30 MIN UP TO 64 MIU/MIN
     Route: 042

REACTIONS (16)
  - ACUTE PULMONARY OEDEMA [None]
  - BLOOD PH DECREASED [None]
  - BLOOD PRESSURE INCREASED [None]
  - CENTRAL VENOUS PRESSURE INCREASED [None]
  - CREPITATIONS [None]
  - DYSPNOEA [None]
  - FACE OEDEMA [None]
  - HEART RATE INCREASED [None]
  - HYPONATRAEMIA [None]
  - OXYGEN SATURATION DECREASED [None]
  - PCO2 DECREASED [None]
  - PO2 DECREASED [None]
  - RESPIRATORY RATE INCREASED [None]
  - RESTLESSNESS [None]
  - RHONCHI [None]
  - WATER INTOXICATION [None]
